FAERS Safety Report 5232668-4 (Version None)
Quarter: 2007Q1

REPORT INFORMATION
  Report Type: 
  Country: None (occurrence: None)
  Receive Date: 20070206
  Receipt Date: 20070206
  Transmission Date: 20070707
  Serious: Yes (Life-Threatening, Hospitalization)
  Sender: FDA-Public Use
  Company Number: None

PATIENT
  Age: 60 Year
  Sex: Male
  Weight: 63.5036 kg

DRUGS (1)
  1. GADOLINIUM [Suspect]
     Indication: VASCULAR ACCESS COMPLICATION
     Dosage: ABOUT 8-9 YEARS AGO. FOR MRI

REACTIONS (5)
  - MUSCLE CONTRACTURE [None]
  - NEPHROGENIC FIBROSING DERMOPATHY [None]
  - RENAL FAILURE [None]
  - SEPSIS [None]
  - WHEELCHAIR USER [None]
